FAERS Safety Report 4420289-2 (Version None)
Quarter: 2004Q3

REPORT INFORMATION
  Report Type: 
  Country: None (occurrence: None)
  Receive Date: 20040804
  Receipt Date: 20040726
  Transmission Date: 20050211
  Serious: Yes (Hospitalization)
  Sender: FDA-Public Use
  Company Number: 2004042363

PATIENT
  Age: 72 Year
  Sex: Female
  Weight: 28.4 kg

DRUGS (4)
  1. NORVASC [Suspect]
     Indication: HYPERTENSION
     Dosage: 5 MG (5 MG, 1 IN 1 D), ORAL
     Route: 048
     Dates: start: 20040416, end: 20040423
  2. STARLIX [Suspect]
     Indication: DIABETES MELLITUS
     Dosage: 270 MG (90 MG, 3 IN 1 D), ORAL
     Route: 048
     Dates: start: 20040421, end: 20040422
  3. GLICLAZIDE (GLICLAZIDE) [Concomitant]
  4. VOGLIBOSE (VOGLIBOSE) [Concomitant]

REACTIONS (9)
  - ARTHRALGIA [None]
  - BLOOD CREATININE INCREASED [None]
  - C-REACTIVE PROTEIN INCREASED [None]
  - DIABETES MELLITUS INADEQUATE CONTROL [None]
  - NAUSEA [None]
  - PYREXIA [None]
  - RENAL DISORDER [None]
  - VOMITING [None]
  - WHITE BLOOD CELL COUNT INCREASED [None]
